FAERS Safety Report 21850216 (Version 1)
Quarter: 2023Q1

REPORT INFORMATION
  Report Type: Spontaneous
  Country: BR (occurrence: BR)
  Receive Date: 20230111
  Receipt Date: 20230111
  Transmission Date: 20230417
  Serious: Yes (Other)
  Sender: FDA-Public Use
  Company Number: BR-ABBOTT-2023A-1358167

PATIENT
  Age: 34 Year
  Sex: Male

DRUGS (2)
  1. DEPAKENE [Suspect]
     Active Substance: VALPROIC ACID
     Indication: Epilepsy
     Route: 048
  2. DEPAKENE [Suspect]
     Active Substance: VALPROIC ACID
     Indication: Epilepsy
     Dosage: 2 CAPSULES IN THE MORNING, 2 CAPSULES AT 15H AND 2 CAPSULES AT 23H
     Route: 048

REACTIONS (6)
  - Epilepsy [Unknown]
  - Hiccups [Unknown]
  - Incorrect dose administered [Unknown]
  - Syncope [Unknown]
  - Choking sensation [Unknown]
  - Malaise [Unknown]
